FAERS Safety Report 6554665-9 (Version None)
Quarter: 2010Q1

REPORT INFORMATION
  Report Type: 
  Country: None (occurrence: None)
  Receive Date: 20100127
  Receipt Date: 20100121
  Transmission Date: 20100710
  Serious: Yes (Other)
  Sender: FDA-Public Use
  Company Number: US-PFIZER INC-2010009734

PATIENT
  Sex: Female
  Weight: 83.007 kg

DRUGS (3)
  1. DETROL LA [Suspect]
     Dates: end: 20100120
  2. ATENOLOL [Concomitant]
     Dosage: UNK
  3. ACETYLSALICYLIC ACID [Concomitant]
     Dosage: UNK

REACTIONS (1)
  - BLOOD URINE [None]
